FAERS Safety Report 8971768 (Version 2)
Quarter: 2018Q1

REPORT INFORMATION
  Report Type: Spontaneous
  Country: JP (occurrence: JP)
  Receive Date: 20121217
  Receipt Date: 20180216
  Transmission Date: 20180509
  Serious: Yes (Life-Threatening, Other)
  Sender: FDA-Public Use
  Company Number: JP-ASTELLAS-2012JP011701

PATIENT
  Age: 27 Year
  Sex: Male

DRUGS (9)
  1. PROGRAF [Suspect]
     Active Substance: TACROLIMUS\TACROLIMUS ANHYDROUS
     Dosage: TAPERING
     Route: 048
  2. PROGRAF [Suspect]
     Active Substance: TACROLIMUS\TACROLIMUS ANHYDROUS
  3. PROGRAF [Suspect]
     Active Substance: TACROLIMUS\TACROLIMUS ANHYDROUS
     Indication: CORD BLOOD TRANSPLANT THERAPY
     Dosage: UNK UNK, UNKNOWN FREQ.
     Route: 048
  4. PROGRAF [Suspect]
     Active Substance: TACROLIMUS\TACROLIMUS ANHYDROUS
     Indication: CHRONIC GRAFT VERSUS HOST DISEASE
     Dosage: TAPERING
     Route: 048
  5. VORICONAZOLE. [Concomitant]
     Active Substance: VORICONAZOLE
     Dosage: UNK UNK, UNKNOWN FREQ.
     Route: 048
  6. VORICONAZOLE. [Concomitant]
     Active Substance: VORICONAZOLE
     Indication: BRONCHOPULMONARY ASPERGILLOSIS
     Dosage: UNK UNK, UNKNOWN FREQ.
     Route: 048
  7. MICAFUNGIN SODIUM [Concomitant]
     Active Substance: MICAFUNGIN SODIUM
     Indication: BRONCHOPULMONARY ASPERGILLOSIS
     Dosage: UNK UNK, UNKNOWN FREQ.
     Route: 065
  8. PROGRAF [Suspect]
     Active Substance: TACROLIMUS\TACROLIMUS ANHYDROUS
     Dosage: UNK UNK, UNKNOWN FREQ.
     Route: 048
  9. MICAFUNGIN SODIUM [Concomitant]
     Active Substance: MICAFUNGIN SODIUM
     Dosage: UNK UNK, UNKNOWN FREQ.
     Route: 065

REACTIONS (3)
  - Epstein-Barr virus associated lymphoproliferative disorder [Recovering/Resolving]
  - Graft versus host disease [Unknown]
  - Drug ineffective [Unknown]
